FAERS Safety Report 5471145-2 (Version None)
Quarter: 2007Q3

REPORT INFORMATION
  Report Type: 
  Country: None (occurrence: None)
  Receive Date: 20070925
  Receipt Date: 20070918
  Transmission Date: 20080115
  Serious: Yes (Hospitalization)
  Sender: FDA-Public Use
  Company Number: 2007BI01416

PATIENT
  Age: 55 Year
  Sex: Female

DRUGS (1)
  1. NATALIZUMAB [Suspect]
     Indication: MULTIPLE SCLEROSIS
     Dosage: 300 MG;QM;IV
     Route: 042
     Dates: start: 20061120

REACTIONS (7)
  - BIPOLAR I DISORDER [None]
  - DELIRIUM [None]
  - DELUSION [None]
  - DEMENTIA [None]
  - DISORIENTATION [None]
  - MULTIPLE SCLEROSIS [None]
  - URINARY TRACT INFECTION [None]
